FAERS Safety Report 11495491 (Version 2)
Quarter: 2017Q3

REPORT INFORMATION
  Report Type: Spontaneous
  Country: US (occurrence: US)
  Receive Date: 20150911
  Receipt Date: 20170817
  Transmission Date: 20171127
  Serious: No
  Sender: FDA-Public Use
  Company Number: US-ROCHE-799492

PATIENT
  Sex: Female

DRUGS (2)
  1. PEGASYS [Suspect]
     Active Substance: PEGINTERFERON ALFA-2A
     Indication: HEPATITIS C
     Route: 065
  2. RIBAVIRIN. [Suspect]
     Active Substance: RIBAVIRIN
     Indication: HEPATITIS C
     Route: 065

REACTIONS (3)
  - Insomnia [Unknown]
  - Pain [Unknown]
  - Headache [Unknown]
